FAERS Safety Report 25174442 (Version 2)
Quarter: 2025Q2

REPORT INFORMATION
  Report Type: Spontaneous
  Country: DE (occurrence: DE)
  Receive Date: 20250408
  Receipt Date: 20250418
  Transmission Date: 20250716
  Serious: Yes (Death, Other)
  Sender: PFIZER
  Company Number: None

PATIENT
  Age: 44 Year
  Sex: Male
  Weight: 85 kg

DRUGS (44)
  1. MEROPENEM [Suspect]
     Active Substance: MEROPENEM
     Indication: Sepsis
     Dosage: UNK, ONCE A DAY
     Route: 042
     Dates: start: 20000911, end: 20000914
  2. DIFLUCAN [Suspect]
     Active Substance: FLUCONAZOLE
     Indication: Fungal infection
     Dosage: 200 MG, DAILY
     Route: 048
     Dates: start: 20000902, end: 20000916
  3. CYTARABINE [Suspect]
     Active Substance: CYTARABINE
     Dates: start: 20000913
  4. HEPARIN SODIUM [Suspect]
     Active Substance: HEPARIN SODIUM
     Indication: Anticoagulant therapy
     Route: 042
     Dates: start: 20000823, end: 20000902
  5. METHOTREXATE SODIUM [Suspect]
     Active Substance: METHOTREXATE SODIUM
     Route: 037
     Dates: start: 20000913
  6. SULBACTAM SODIUM [Suspect]
     Active Substance: SULBACTAM SODIUM
     Indication: Pneumonia
     Dosage: UNK, TID (THREE TIMES A DAY)
     Route: 042
     Dates: start: 20000909, end: 20000912
  7. NOVALGIN (METAMIZOLE SODIUM) [Suspect]
     Active Substance: METAMIZOLE SODIUM
  8. OXAZEPAM [Suspect]
     Active Substance: OXAZEPAM
  9. DEXAMETHASONE [Suspect]
     Active Substance: DEXAMETHASONE
     Indication: Metastases to liver
     Route: 037
     Dates: start: 20000913
  10. DEXAMETHASONE [Suspect]
     Active Substance: DEXAMETHASONE
     Indication: Lymphoma
  11. LORMETAZEPAM [Suspect]
     Active Substance: LORMETAZEPAM
  12. KONAKION [Suspect]
     Active Substance: PHYTONADIONE
  13. AMINO ACIDS\CARBOHYDRATES\ELECTROLYTES NOS [Suspect]
     Active Substance: AMINO ACIDS\CARBOHYDRATES\ELECTROLYTES NOS
  14. VITAMINS [Suspect]
     Active Substance: VITAMINS
  15. AMBISOME [Suspect]
     Active Substance: AMPHOTERICIN B
     Indication: Sepsis
     Route: 042
     Dates: start: 20000912, end: 20000915
  16. IBUPROFEN [Concomitant]
     Active Substance: IBUPROFEN
     Indication: Pain
     Route: 048
     Dates: start: 20000905, end: 20000907
  17. PIPERACILLIN SODIUM [Concomitant]
     Active Substance: PIPERACILLIN SODIUM
     Indication: Pneumonia
     Dosage: 4 GRAMS DAILY
     Route: 042
     Dates: start: 20000909, end: 20000911
  18. PIPERACILLIN SODIUM\TAZOBACTAM SODIUM [Concomitant]
     Active Substance: PIPERACILLIN SODIUM\TAZOBACTAM SODIUM
     Route: 042
     Dates: start: 20000824, end: 20000908
  19. ALLOPURINOL [Concomitant]
     Active Substance: ALLOPURINOL
     Indication: Hyperuricaemia
     Route: 048
     Dates: start: 20000823, end: 20000831
  20. ACETAMINOPHEN [Concomitant]
     Active Substance: ACETAMINOPHEN
     Indication: Pain
     Route: 048
     Dates: start: 20000824
  21. ACETAMINOPHEN [Concomitant]
     Active Substance: ACETAMINOPHEN
     Dates: start: 20000904
  22. ACETAMINOPHEN [Concomitant]
     Active Substance: ACETAMINOPHEN
     Route: 048
     Dates: start: 20000909
  23. LASIX [Concomitant]
     Active Substance: FUROSEMIDE
     Indication: Oedema
     Route: 042
     Dates: start: 20000824, end: 20000909
  24. HUMAN IMMUNOGLOBULIN G [Concomitant]
     Active Substance: HUMAN IMMUNOGLOBULIN G
     Indication: Therapeutic procedure
     Route: 042
     Dates: start: 20000909, end: 20000912
  25. AMPHO-MORONAL [Concomitant]
     Active Substance: AMPHOTERICIN B
     Indication: Fungal infection
     Dates: start: 20000909, end: 20000918
  26. OMEPRAZOLE [Concomitant]
     Active Substance: OMEPRAZOLE
     Indication: Prophylaxis
     Route: 048
     Dates: start: 20000823, end: 20000829
  27. OMEPRAZOLE [Concomitant]
     Active Substance: OMEPRAZOLE
     Dates: start: 20000902, end: 20000909
  28. AREDIA [Concomitant]
     Active Substance: PAMIDRONATE DISODIUM
     Indication: Hypercalcaemia
     Route: 042
     Dates: start: 20000909
  29. NOREPINEPHRINE HYDROCHLORIDE, (+/-)- [Concomitant]
     Active Substance: NOREPINEPHRINE HYDROCHLORIDE, (+/-)-
     Indication: Sedative therapy
     Route: 042
     Dates: start: 20000910, end: 20000918
  30. METOPROLOL SUCCINATE [Concomitant]
     Active Substance: METOPROLOL SUCCINATE
     Indication: Arrhythmia
     Dosage: 20 MG/DAY
     Route: 048
     Dates: start: 20000823, end: 20000918
  31. FENTANYL [Concomitant]
     Active Substance: FENTANYL
     Indication: Sedative therapy
     Route: 042
     Dates: start: 20000910
  32. FRAGMIN [Concomitant]
     Active Substance: DALTEPARIN SODIUM
     Indication: Anticoagulant therapy
     Route: 058
     Dates: start: 20000902, end: 20000906
  33. POTASSIUM CHLORIDE [Concomitant]
     Active Substance: POTASSIUM CHLORIDE
     Indication: Hypokalaemia
     Route: 048
     Dates: start: 20000904, end: 20000906
  34. HERBALS [Concomitant]
     Active Substance: HERBALS
     Indication: Sedation
     Route: 048
     Dates: start: 20000823, end: 20000906
  35. DICLOFENAC DIETHYLAMINE [Concomitant]
     Active Substance: DICLOFENAC DIETHYLAMINE
     Indication: Pain
     Route: 061
     Dates: start: 20000901, end: 20000902
  36. LOPERAMIDE [Concomitant]
     Active Substance: LOPERAMIDE
     Indication: Diarrhoea
     Route: 048
     Dates: start: 20000823, end: 20000825
  37. LOPERAMIDE [Concomitant]
     Active Substance: LOPERAMIDE
     Dates: start: 20000831
  38. LEVOFLOXACIN [Concomitant]
     Active Substance: LEVOFLOXACIN
     Route: 042
     Dates: start: 20000825, end: 20000902
  39. LEVOFLOXACIN [Concomitant]
     Active Substance: LEVOFLOXACIN
     Route: 048
     Dates: start: 20000903, end: 20000905
  40. IBANDRONIC ACID [Concomitant]
     Active Substance: IBANDRONIC ACID
  41. TUTOFUSIN [AMINO ACIDS NOS;ELECTROLYTES NOS;VITAMINS NOS] [Concomitant]
  42. VANCOMYCIN [Concomitant]
     Active Substance: VANCOMYCIN
  43. PREDNISOLONE [Concomitant]
     Active Substance: PREDNISOLONE
  44. CIPROFLOXACIN [Concomitant]
     Active Substance: CIPROFLOXACIN
     Dates: start: 20000903, end: 20000905

REACTIONS (2)
  - Multiple organ dysfunction syndrome [Fatal]
  - Stevens-Johnson syndrome [Unknown]

NARRATIVE: CASE EVENT DATE: 20000913
